FAERS Safety Report 5876908-7 (Version None)
Quarter: 2008Q3

REPORT INFORMATION
  Report Type: 
  Country: None (occurrence: None)
  Receive Date: 20080908
  Receipt Date: 20080821
  Transmission Date: 20090109
  Serious: Yes (Other)
  Sender: FDA-Public Use
  Company Number: 238421K07USA

PATIENT
  Age: 32 Year
  Sex: Female
  Weight: 51.2565 kg

DRUGS (5)
  1. REBIF [Suspect]
     Indication: MULTIPLE SCLEROSIS
     Dosage: 44 MCG, 3 IN 1 WEEKS, SUBCUTANEOUS
     Route: 058
     Dates: start: 20050101, end: 20070601
  2. REBIF [Suspect]
     Indication: MULTIPLE SCLEROSIS
     Dosage: 44 MCG, 3 IN 1 WEEKS, SUBCUTANEOUS
     Route: 058
     Dates: start: 20080818
  3. ADVAIR (SERETIDE) [Concomitant]
  4. SINGULAIR [Concomitant]
  5. ALLEGRA-D (ALLEGRA-D) [Concomitant]

REACTIONS (5)
  - CAESAREAN SECTION [None]
  - DRUG EXPOSURE BEFORE PREGNANCY [None]
  - FOETAL HEART RATE DECREASED [None]
  - GESTATIONAL DIABETES [None]
  - HIGH RISK PREGNANCY [None]
